FAERS Safety Report 19417499 (Version 1)
Quarter: 2021Q2

REPORT INFORMATION
  Report Type: Spontaneous
  Country: US (occurrence: US)
  Receive Date: 20210614
  Receipt Date: 20210614
  Transmission Date: 20210717
  Serious: Yes (Other)
  Sender: FDA-Public Use
  Company Number: US-GLAND PHARMA LIMITED-2021US004269

PATIENT
  Age: 15 Year
  Sex: Male

DRUGS (2)
  1. CLOFARABINE. [Suspect]
     Active Substance: CLOFARABINE
     Indication: HISTIOCYTIC SARCOMA
     Dosage: UNK
     Route: 065
  2. TRAMETINIB [Suspect]
     Active Substance: TRAMETINIB
     Indication: HISTIOCYTIC SARCOMA
     Dosage: UNK
     Route: 065

REACTIONS (4)
  - Histiocytic sarcoma [Unknown]
  - Off label use [Unknown]
  - Metastases to liver [Unknown]
  - Disease progression [Unknown]
